FAERS Safety Report 7003397-1 (Version None)
Quarter: 2010Q3

REPORT INFORMATION
  Report Type: 
  Country: None (occurrence: None)
  Receive Date: 20100920
  Receipt Date: 20100908
  Transmission Date: 20110219
  Serious: Yes (Other)
  Sender: FDA-Public Use
  Company Number: US-PFIZER INC-2010114423

PATIENT
  Sex: Male

DRUGS (3)
  1. NITROSTAT [Suspect]
     Dosage: 0.4 MG, AS NEEDED
     Route: 060
  2. DIGOXIN [Concomitant]
     Dosage: 250 UG, 1X/DAY
     Route: 048
  3. CARVEDILOL [Concomitant]
     Dosage: 12.5 MG HALF A TABLET 2 TIMES A DAY
     Route: 048

REACTIONS (1)
  - DRUG INEFFECTIVE [None]
